FAERS Safety Report 6820858-6 (Version None)
Quarter: 2010Q3

REPORT INFORMATION
  Report Type: 
  Country: None (occurrence: None)
  Receive Date: 20100707
  Receipt Date: 20070731
  Transmission Date: 20110219
  Serious: No
  Sender: FDA-Public Use
  Company Number: US-PFIZER INC-2007063711

PATIENT
  Sex: Female
  Weight: 63.4 kg

DRUGS (7)
  1. ZOLOFT [Suspect]
     Indication: DEPRESSION
     Dates: start: 19970101
  2. POLYETHYLENE GLYCOL [Suspect]
     Indication: CONSTIPATION
     Route: 048
     Dates: start: 20060101
  3. POLYETHYLENE GLYCOL [Suspect]
     Indication: DEPRESSION
  4. CLONAZEPAM [Concomitant]
     Indication: INSOMNIA
     Dates: start: 19970101
  5. IMIPRAMINE [Concomitant]
     Indication: DEPRESSION
     Dates: start: 20010101
  6. FLUTICASONE PROPIONATE [Concomitant]
     Indication: ASTHMA
     Dates: start: 20020101
  7. FLUNISOLIDE [Concomitant]
     Indication: ASTHMA
     Dates: start: 20020101

REACTIONS (3)
  - ALOPECIA [None]
  - CONSTIPATION [None]
  - LICHEN PLANUS [None]
